FAERS Safety Report 18334583 (Version 1)
Quarter: 2020Q4

REPORT INFORMATION
  Report Type: Spontaneous
  Country: US (occurrence: US)
  Receive Date: 20201001
  Receipt Date: 20201001
  Transmission Date: 20210113
  Serious: Yes (Other)
  Sender: FDA-Public Use
  Company Number: US-TARO-2020TAR01533

PATIENT
  Age: 66 Year
  Sex: Female

DRUGS (3)
  1. TRIMETHOPRIM-SULFAMETHOXAZOLE [Interacting]
     Active Substance: SULFAMETHOXAZOLE\TRIMETHOPRIM
     Indication: PYELONEPHRITIS
     Dosage: 160/800, EVERY 12 HOURS
     Route: 065
  2. WARFARIN [Interacting]
     Active Substance: WARFARIN
     Dosage: 4 MG, DAILY
     Route: 048
  3. WARFARIN [Suspect]
     Active Substance: WARFARIN
     Indication: ANTICOAGULANT THERAPY
     Dosage: 5 MG, DAILY
     Route: 048

REACTIONS (4)
  - Rectal haemorrhage [Unknown]
  - International normalised ratio increased [Recovered/Resolved]
  - Drug interaction [Unknown]
  - Epistaxis [Unknown]
